FAERS Safety Report 7418118-8 (Version None)
Quarter: 2011Q2

REPORT INFORMATION
  Report Type: 
  Country: None (occurrence: None)
  Receive Date: 20110415
  Receipt Date: 20110401
  Transmission Date: 20111010
  Serious: Yes (Other)
  Sender: FDA-Public Use
  Company Number: FR-WATSON-2011-05109

PATIENT
  Age: 14 Year
  Sex: Male

DRUGS (1)
  1. MORPHINE SULFATE [Suspect]
     Indication: SICKLE CELL ANAEMIA WITH CRISIS
     Dosage: UNK

REACTIONS (3)
  - URINARY RETENTION [None]
  - HYPERKALAEMIA [None]
  - RENAL FAILURE ACUTE [None]
